FAERS Safety Report 8385893-8 (Version None)
Quarter: 2012Q2

REPORT INFORMATION
  Report Type: 
  Country: None (occurrence: None)
  Receive Date: 20120525
  Receipt Date: 20120521
  Transmission Date: 20120825
  Serious: Yes (Hospitalization)
  Sender: FDA-Public Use
  Company Number: BR-US-EMD SERONO, INC.-7134375

PATIENT
  Sex: Female

DRUGS (10)
  1. DYPIRONE (DIPYRONE) [Concomitant]
     Indication: PRODUCT USED FOR UNKNOWN INDICATION
  2. ACETAMINOPHEN [Concomitant]
     Indication: PRODUCT USED FOR UNKNOWN INDICATION
  3. CLONAZEPAM [Concomitant]
     Indication: PRODUCT USED FOR UNKNOWN INDICATION
  4. REBIF [Suspect]
     Indication: MULTIPLE SCLEROSIS
     Dates: start: 20030501
  5. REBIF [Suspect]
     Dates: start: 20120214, end: 20120305
  6. REBIF [Suspect]
     Dates: start: 20120402, end: 20120416
  7. LYRICA [Concomitant]
     Indication: PRODUCT USED FOR UNKNOWN INDICATION
  8. UNSPECIFIED MEDICATION [Concomitant]
     Indication: PAIN
  9. REBIF [Suspect]
     Dates: start: 20120306, end: 20120401
  10. TRAMADOL HYDROCHLORIDE [Concomitant]
     Indication: PRODUCT USED FOR UNKNOWN INDICATION

REACTIONS (8)
  - HYPOAESTHESIA [None]
  - SPINAL PAIN [None]
  - CHEST DISCOMFORT [None]
  - PARAESTHESIA [None]
  - FATIGUE [None]
  - MUSCLE SPASMS [None]
  - BURNING SENSATION [None]
  - PAIN [None]
